FAERS Safety Report 4549960-9 (Version None)
Quarter: 2005Q1

REPORT INFORMATION
  Report Type: 
  Country: None (occurrence: None)
  Receive Date: 20050110
  Receipt Date: 20041221
  Transmission Date: 20050727
  Serious: Yes (Other)
  Sender: FDA-Public Use
  Company Number: USA-04-0258-STR

PATIENT
  Sex: Male

DRUGS (1)
  1. STRIANT [Suspect]
     Dates: start: 20041219

REACTIONS (2)
  - BLOOD PRESSURE INCREASED [None]
  - NON-CARDIAC CHEST PAIN [None]
